FAERS Safety Report 10253431 (Version 1)
Quarter: 2014Q2

REPORT INFORMATION
  Report Type: Spontaneous
  Country: US (occurrence: US)
  Receive Date: 20140623
  Receipt Date: 20140623
  Transmission Date: 20141212
  Serious: Yes (Death, Other)
  Sender: FDA-Public Use
  Company Number: PHHY2014US075060

PATIENT
  Age: 28 Year
  Sex: Female

DRUGS (4)
  1. FLUDARABINE [Suspect]
     Indication: IMMUNOSUPPRESSION
  2. BUSULFAN [Suspect]
     Indication: IMMUNOSUPPRESSION
  3. CYCLOPHOSPHAMIDE [Suspect]
     Indication: IMMUNOSUPPRESSION
  4. ANTITHYMOCYTE IMMUNOGLOBULIN [Suspect]
     Indication: IMMUNOSUPPRESSION

REACTIONS (11)
  - Death [Fatal]
  - Diffuse large B-cell lymphoma [Unknown]
  - Lymphoma [Unknown]
  - Renal failure [Unknown]
  - BK virus infection [Unknown]
  - Cytomegalovirus viraemia [Unknown]
  - Blood stem cell transplant failure [Unknown]
  - Post transplant lymphoproliferative disorder [Unknown]
  - Fusarium infection [Unknown]
  - Adenovirus infection [Unknown]
  - Candida infection [Unknown]
